FAERS Safety Report 22151441 (Version 1)
Quarter: 2023Q1

REPORT INFORMATION
  Report Type: Spontaneous
  Country: BF (occurrence: BF)
  Receive Date: 20230329
  Receipt Date: 20230329
  Transmission Date: 20230418
  Serious: Yes (Hospitalization, Other)
  Sender: FDA-Public Use
  Company Number: BF-MLMSERVICE-20230315-4164160-1

PATIENT
  Age: 40 Year
  Sex: Male

DRUGS (1)
  1. IBUPROFEN [Suspect]
     Active Substance: IBUPROFEN
     Indication: Toothache
     Dosage: UNKNOWN, UNKNOWN
     Route: 065

REACTIONS (4)
  - Peritonitis [Recovered/Resolved]
  - Jaw fracture [Unknown]
  - Osteitis [Recovering/Resolving]
  - Peptic ulcer perforation [Recovered/Resolved]
